FAERS Safety Report 6942794-7 (Version None)
Quarter: 2010Q3

REPORT INFORMATION
  Report Type: 
  Country: None (occurrence: None)
  Receive Date: 20100826
  Receipt Date: 20100813
  Transmission Date: 20110219
  Serious: Yes (Hospitalization)
  Sender: FDA-Public Use
  Company Number: NL-ROCHE-711108

PATIENT
  Sex: Male
  Weight: 100 kg

DRUGS (9)
  1. TOCILIZUMAB [Suspect]
     Indication: RHEUMATOID ARTHRITIS
     Dosage: LAST DOSE PRIOR TO EVENT: 26 APRIL 2010, FORM: INFUSION
     Route: 042
     Dates: start: 20090622
  2. TOCILIZUMAB [Suspect]
     Dosage: FORM: INFUSION
     Route: 042
     Dates: start: 20100321
  3. TOCILIZUMAB [Suspect]
     Dosage: FORM: INFUSION
     Route: 042
     Dates: start: 20100329
  4. TOCILIZUMAB [Suspect]
     Dosage: FORM: INFUSION
     Route: 042
     Dates: start: 20100426
  5. TOCILIZUMAB [Suspect]
     Dosage: FORM: INFUSION
     Route: 042
     Dates: start: 20100520
  6. TOCILIZUMAB [Suspect]
     Dosage: RECEIVED DOSE IN MA21573, FORM: INFUSION
     Route: 042
     Dates: end: 20090622
  7. HYDROCHLOROTHIAZIDE [Concomitant]
     Dates: start: 20090817
  8. ENALAPRIL [Concomitant]
     Dates: start: 20091012
  9. PREDNISONE [Concomitant]
     Dates: start: 20100118

REACTIONS (1)
  - CEREBRAL INFARCTION [None]
